FAERS Safety Report 4946577-9 (Version None)
Quarter: 2006Q1

REPORT INFORMATION
  Report Type: 
  Country: None (occurrence: None)
  Receive Date: 20060317
  Receipt Date: 20060309
  Transmission Date: 20060701
  Serious: Yes (Death)
  Sender: FDA-Public Use
  Company Number: IN-GLAXOSMITHKLINE-B0415327A

PATIENT
  Age: 67 Year
  Sex: Male
  Weight: 50 kg

DRUGS (6)
  1. FONDAPARINUX [Suspect]
     Dosage: 2.5MG PER DAY
     Route: 058
     Dates: start: 20050529, end: 20050529
  2. ASPIRIN [Concomitant]
  3. CLOPIDOGREL [Concomitant]
  4. BETA BLOCKER [Concomitant]
  5. CALCIUM CHANNEL BLOCKER [Concomitant]
  6. ACE INHIBITOR [Concomitant]

REACTIONS (1)
  - CEREBROVASCULAR ACCIDENT [None]
